FAERS Safety Report 19944023 (Version 1)
Quarter: 2021Q4

REPORT INFORMATION
  Report Type: Spontaneous
  Country: US (occurrence: US)
  Receive Date: 20211008
  Receipt Date: 20211008
  Transmission Date: 20220303
  Serious: No
  Sender: FDA-Public Use
  Company Number: None

PATIENT
  Age: 71 Year
  Sex: Female

DRUGS (1)
  1. PROLIA [Suspect]
     Active Substance: DENOSUMAB
     Indication: Osteoporosis
     Dosage: OTHER FREQUENCY:OTHER
     Route: 058
     Dates: start: 202005, end: 20210605

REACTIONS (2)
  - Diarrhoea [None]
  - Bone pain [None]

NARRATIVE: CASE EVENT DATE: 20200508
